FAERS Safety Report 14445515 (Version 2)
Quarter: 2018Q1

REPORT INFORMATION
  Report Type: Report from Study
  Country: US (occurrence: US)
  Receive Date: 20180126
  Receipt Date: 20180305
  Transmission Date: 20180509
  Serious: Yes (Other)
  Sender: FDA-Public Use
  Company Number: US-GILEAD-2018-0317645

PATIENT
  Age: 84 Year
  Sex: Male

DRUGS (2)
  1. AMBRISENTAN [Suspect]
     Active Substance: AMBRISENTAN
     Indication: PRODUCT USED FOR UNKNOWN INDICATION
     Dosage: 5 MG, QD
     Route: 065
     Dates: start: 20180103
  2. XARELTO [Concomitant]
     Active Substance: RIVAROXABAN

REACTIONS (5)
  - Intra-abdominal fluid collection [Unknown]
  - Swelling [Not Recovered/Not Resolved]
  - Anaemia [Recovered/Resolved]
  - Sleep apnoea syndrome [Recovered/Resolved]
  - Fluid retention [Not Recovered/Not Resolved]
